FAERS Safety Report 11128958 (Version 1)
Quarter: 2015Q2

REPORT INFORMATION
  Report Type: Spontaneous
  Country: JP (occurrence: JP)
  Receive Date: 20150521
  Receipt Date: 20150521
  Transmission Date: 20150821
  Serious: Yes (Hospitalization, Other)
  Sender: FDA-Public Use
  Company Number: JP-009507513-1210JPN012695

PATIENT
  Age: 75 Year
  Sex: Female

DRUGS (5)
  1. PREDNISOLONE. [Concomitant]
     Active Substance: PREDNISOLONE
     Indication: RHEUMATOID ARTHRITIS
     Dosage: 5 MG, 1 DAY, THE DIVIDED DOSE FREQUENCY WAS UNCERTAIN
     Route: 048
  2. MIZORIBINE [Concomitant]
     Active Substance: MIZORIBINE
     Indication: RHEUMATOID ARTHRITIS
     Dosage: 100 MG, 1 WEEK, THE DIVIDED DOSE FREQUENCY WAS UNCERTAIN
     Route: 048
  3. METHOTREXATE [Concomitant]
     Active Substance: METHOTREXATE
     Indication: RHEUMATOID ARTHRITIS
     Dosage: 4 MG 1 WEEK (DIVIDED DOSE, FREQUENCY UNKNOWN)
     Route: 048
  4. ALENDRONATE SODIUM. [Suspect]
     Active Substance: ALENDRONATE SODIUM
     Indication: OSTEOPOROSIS
     Dosage: 35 MG, QW
     Route: 048
  5. LANSOPRAZOLE. [Concomitant]
     Active Substance: LANSOPRAZOLE
     Dosage: 15 MG, 1 DAY, THE DIVIDED DOSE FREQUENCY WAS UNCERTAIN
     Route: 048

REACTIONS (3)
  - Femur fracture [Not Recovered/Not Resolved]
  - Atypical femur fracture [Unknown]
  - Low turnover osteopathy [Not Recovered/Not Resolved]
